FAERS Safety Report 4954415-3 (Version None)
Quarter: 2006Q1

REPORT INFORMATION
  Report Type: 
  Country: None (occurrence: None)
  Receive Date: 20060327
  Receipt Date: 20060308
  Transmission Date: 20060701
  Serious: Yes (Other)
  Sender: FDA-Public Use
  Company Number: US-ROCHE-439725

PATIENT
  Age: 72 Year
  Sex: Female
  Weight: 56.7 kg

DRUGS (1)
  1. BONIVA [Suspect]
     Indication: DRUG USE FOR UNKNOWN INDICATION
     Route: 048
     Dates: start: 20060304

REACTIONS (1)
  - GASTROINTESTINAL HAEMORRHAGE [None]
